FAERS Safety Report 24767687 (Version 2)
Quarter: 2025Q1

REPORT INFORMATION
  Report Type: Spontaneous
  Country: US (occurrence: US)
  Receive Date: 20241223
  Receipt Date: 20250107
  Transmission Date: 20250409
  Serious: Yes (Death, Other)
  Sender: ALEXION PHARMACEUTICALS
  Company Number: 924907

PATIENT
  Age: 73 Year

DRUGS (4)
  1. OLAPARIB [Suspect]
     Active Substance: OLAPARIB
     Indication: BRCA1 gene mutation
     Route: 065
  2. OLAPARIB [Suspect]
     Active Substance: OLAPARIB
     Route: 065
  3. OLAPARIB [Suspect]
     Active Substance: OLAPARIB
     Route: 065
  4. OLAPARIB [Suspect]
     Active Substance: OLAPARIB
     Route: 065

REACTIONS (1)
  - Malignant neoplasm progression [Fatal]
